FAERS Safety Report 15803525 (Version 1)
Quarter: 2019Q1

REPORT INFORMATION
  Report Type: Spontaneous
  Country: US (occurrence: US)
  Receive Date: 20190109
  Receipt Date: 20190109
  Transmission Date: 20190417
  Serious: No
  Sender: FDA-Public Use
  Company Number: US-BAYER-2019-006660

PATIENT
  Age: 24 Year
  Sex: Male
  Weight: 136 kg

DRUGS (1)
  1. MIRALAX [Suspect]
     Active Substance: POLYETHYLENE GLYCOL 3350
     Indication: GASTROINTESTINAL DISORDER
     Dosage: UNK(TOOK THE LINE THAT^S ON THE CAP DOSE)
     Route: 048
     Dates: end: 20190107

REACTIONS (3)
  - Circumstance or information capable of leading to medication error [Unknown]
  - Poor quality product administered [None]
  - Product odour abnormal [Unknown]

NARRATIVE: CASE EVENT DATE: 20190107
